FAERS Safety Report 15365455 (Version 9)
Quarter: 2021Q2

REPORT INFORMATION
  Report Type: Spontaneous
  Country: US (occurrence: US)
  Receive Date: 20180910
  Receipt Date: 20210526
  Transmission Date: 20210716
  Serious: Yes (Other)
  Sender: FDA-Public Use
  Company Number: US-PFIZER INC-2018362143

PATIENT
  Age: 51 Year
  Sex: Female
  Weight: 48 kg

DRUGS (6)
  1. DEPO?MEDROL [Suspect]
     Active Substance: METHYLPREDNISOLONE ACETATE
     Indication: INFLAMMATION
     Dosage: 80 MG, SINGLE (80MG SINGLE INJECTION IN LEFT LEVATOR SCAPULAE AREA OF SHOULDER MUSCLE)
     Route: 030
     Dates: start: 20180613
  2. TENS [Concomitant]
     Indication: MUSCLE TIGHTNESS
     Dosage: UNK
  3. PANTOPRAZOLE [Concomitant]
     Active Substance: PANTOPRAZOLE
     Dosage: UNK
  4. CYMBALTA [Concomitant]
     Active Substance: DULOXETINE HYDROCHLORIDE
     Dosage: UNK
  5. DICLOFENAC EPOLAMINE [Suspect]
     Active Substance: DICLOFENAC EPOLAMINE
  6. TOPAMAX [Concomitant]
     Active Substance: TOPIRAMATE
     Dosage: UNK

REACTIONS (44)
  - Sarcoidosis [Unknown]
  - Lacrimation increased [Not Recovered/Not Resolved]
  - Hypoaesthesia [Unknown]
  - Musculoskeletal stiffness [Unknown]
  - Respiratory disorder [Unknown]
  - Skin laceration [Unknown]
  - Anal sphincter hypertonia [Unknown]
  - Dyspnoea [Unknown]
  - Musculoskeletal stiffness [Unknown]
  - Myalgia [Not Recovered/Not Resolved]
  - Oropharyngeal pain [Unknown]
  - Angina pectoris [Unknown]
  - Anxiety [Not Recovered/Not Resolved]
  - Bone pain [Not Recovered/Not Resolved]
  - Fungal infection [Unknown]
  - Gastrointestinal disorder [Unknown]
  - Malaise [Unknown]
  - Neuritis [Unknown]
  - Physical deconditioning [Unknown]
  - Conjunctivitis [Not Recovered/Not Resolved]
  - Dysphonia [Unknown]
  - Headache [Unknown]
  - Inflammation [Unknown]
  - Insomnia [Recovering/Resolving]
  - Ligament injury [Unknown]
  - Muscular weakness [Not Recovered/Not Resolved]
  - Nerve injury [Unknown]
  - Weight decreased [Not Recovered/Not Resolved]
  - Asthenia [Unknown]
  - Dry skin [Unknown]
  - Injection site mass [Not Recovered/Not Resolved]
  - Muscle tightness [Unknown]
  - Nuchal rigidity [Unknown]
  - Occipital neuralgia [Unknown]
  - Loss of personal independence in daily activities [Unknown]
  - Skin atrophy [Unknown]
  - Bronchospasm [Unknown]
  - Arthropathy [Unknown]
  - Cervicogenic headache [Recovered/Resolved]
  - Dry mouth [Not Recovered/Not Resolved]
  - Infection [Unknown]
  - Muscle atrophy [Unknown]
  - Pain [Unknown]
  - Tongue dry [Unknown]

NARRATIVE: CASE EVENT DATE: 201806
